FAERS Safety Report 19830720 (Version 2)
Quarter: 2021Q4

REPORT INFORMATION
  Report Type: Report from Study
  Country: CA (occurrence: CA)
  Receive Date: 20210915
  Receipt Date: 20211020
  Transmission Date: 20220303
  Serious: Yes (Other)
  Sender: FDA-Public Use
  Company Number: CA-JNJFOC-20210834064

PATIENT
  Age: 82 Year
  Sex: Female

DRUGS (15)
  1. SELEXIPAG [Suspect]
     Active Substance: SELEXIPAG
     Indication: Pulmonary hypertension
     Route: 048
     Dates: start: 20210722, end: 202109
  2. SELEXIPAG [Suspect]
     Active Substance: SELEXIPAG
     Route: 048
     Dates: start: 20210907
  3. BOSENTAN [Suspect]
     Active Substance: BOSENTAN
     Indication: Pulmonary hypertension
     Route: 048
     Dates: start: 20200130
  4. ADCIRCA [Concomitant]
     Active Substance: TADALAFIL
  5. PILOCARPINE [Concomitant]
     Active Substance: PILOCARPINE
  6. LEVOTHYROXINE [Concomitant]
     Active Substance: LEVOTHYROXINE
  7. SPIRIVA [Concomitant]
     Active Substance: TIOTROPIUM BROMIDE MONOHYDRATE
  8. DIGOXIN [Concomitant]
     Active Substance: DIGOXIN
  9. LISINOPRIL [Concomitant]
     Active Substance: LISINOPRIL
  10. RIVAROXABAN [Concomitant]
     Active Substance: RIVAROXABAN
  11. ASCORBIC ACID [Concomitant]
     Active Substance: ASCORBIC ACID
  12. CALCIUM CARBONATE\CHOLECALCIFEROL [Concomitant]
     Active Substance: CALCIUM CARBONATE\CHOLECALCIFEROL
  13. FUROSEMIDE [Concomitant]
     Active Substance: FUROSEMIDE
  14. SPIRONOLACTONE [Concomitant]
     Active Substance: SPIRONOLACTONE
  15. FISH OIL [Concomitant]
     Active Substance: FISH OIL

REACTIONS (7)
  - Constipation [Not Recovered/Not Resolved]
  - Oedema peripheral [Not Recovered/Not Resolved]
  - Dyspnoea [Not Recovered/Not Resolved]
  - Muscle twitching [Not Recovered/Not Resolved]
  - Hypotension [Not Recovered/Not Resolved]
  - Lethargy [Not Recovered/Not Resolved]
  - Blood iron decreased [Unknown]

NARRATIVE: CASE EVENT DATE: 20211007
